FAERS Safety Report 22162504 (Version 1)
Quarter: 2023Q1

REPORT INFORMATION
  Report Type: Spontaneous
  Country: CA (occurrence: CA)
  Receive Date: 20230331
  Receipt Date: 20230331
  Transmission Date: 20230418
  Serious: Yes (Other)
  Sender: FDA-Public Use
  Company Number: CA-002147023-NVSC2023CA069503

PATIENT
  Age: 29 Year
  Sex: Male
  Weight: 107 kg

DRUGS (5)
  1. MYCOPHENOLATE MOFETIL [Suspect]
     Active Substance: MYCOPHENOLATE MOFETIL
     Indication: Product used for unknown indication
     Dosage: 500 MG, BID (2 EVERY 1 DAYS)
     Route: 065
  2. PREDNISONE [Suspect]
     Active Substance: PREDNISONE
     Indication: Product used for unknown indication
     Dosage: UNK
     Route: 065
  3. SOLIRIS [Suspect]
     Active Substance: ECULIZUMAB
     Indication: Off label use
     Dosage: 900 MG, QW (1 EVERY 1 WEEKS, CONCENTRATE FOR SOLUTION FOR INFUSION
     Route: 042
  4. SOLIRIS [Suspect]
     Active Substance: ECULIZUMAB
     Indication: Nephropathy
     Dosage: 1200 MG (SOLUTION INTRAVENOUS)
     Route: 042
  5. SOLIRIS [Suspect]
     Active Substance: ECULIZUMAB
     Dosage: 1200 MG, Q2W (1 EVERY 1 WEEKS, CONCENTRATE FOR SOLUTION FOR INFUSION)
     Route: 042

REACTIONS (9)
  - C3 glomerulopathy [Not Recovered/Not Resolved]
  - COVID-19 [Not Recovered/Not Resolved]
  - End stage renal disease [Not Recovered/Not Resolved]
  - Laboratory test abnormal [Not Recovered/Not Resolved]
  - Leukopenia [Not Recovered/Not Resolved]
  - SARS-CoV-2 test positive [Not Recovered/Not Resolved]
  - Weight increased [Not Recovered/Not Resolved]
  - Condition aggravated [Not Recovered/Not Resolved]
  - Off label use [Not Recovered/Not Resolved]
